FAERS Safety Report 23040784 (Version 1)
Quarter: 2023Q4

REPORT INFORMATION
  Report Type: Spontaneous
  Country: US (occurrence: US)
  Receive Date: 20231006
  Receipt Date: 20231006
  Transmission Date: 20240110
  Serious: Yes (Other)
  Sender: FDA-Public Use
  Company Number: US-PAIPHARMA-2023-US-032474

PATIENT
  Age: 62 Year
  Sex: Male

DRUGS (3)
  1. VANCOMYCIN [Suspect]
     Active Substance: VANCOMYCIN
     Indication: Osteomyelitis
     Dosage: 1500 MG TWICE DAILY
     Route: 042
  2. PALIPERIDONE [Concomitant]
     Active Substance: PALIPERIDONE
     Route: 030
  3. CEFTRIAXONE [Concomitant]
     Active Substance: CEFTRIAXONE\CEFTRIAXONE SODIUM
     Dosage: 2 GRAMS DAILY
     Route: 042

REACTIONS (2)
  - Leukopenia [Unknown]
  - Neutropenia [Unknown]
